FAERS Safety Report 6486834-0 (Version None)
Quarter: 2009Q4

REPORT INFORMATION
  Report Type: 
  Country: None (occurrence: None)
  Receive Date: 20091210
  Receipt Date: 20091207
  Transmission Date: 20100525
  Serious: Yes (Death, Hospitalization)
  Sender: FDA-Public Use
  Company Number: PHHY2009MX46405

PATIENT
  Sex: Female

DRUGS (2)
  1. RASILEZ [Suspect]
     Indication: HYPERTENSION
     Dosage: 1 TABLET (150 MG) PER DAY
     Route: 048
     Dates: start: 20080801
  2. RASILEZ [Suspect]
     Dosage: 2 TABLET (150 MG) PER DAY
     Route: 048
     Dates: start: 20090601

REACTIONS (4)
  - CARDIO-RESPIRATORY ARREST [None]
  - HIP FRACTURE [None]
  - PNEUMONIA [None]
  - SURGERY [None]
